FAERS Safety Report 17814646 (Version 1)
Quarter: 2020Q2

REPORT INFORMATION
  Report Type: Spontaneous
  Country: US (occurrence: US)
  Receive Date: 20200522
  Receipt Date: 20200522
  Transmission Date: 20200714
  Serious: Yes (Other)
  Sender: FDA-Public Use
  Company Number: US-LEADINGPHARMA-US-2020LEASPO00073

PATIENT
  Age: 71 Year
  Sex: Male
  Weight: 170 kg

DRUGS (1)
  1. LORAZEPAM TABLETS USP [Suspect]
     Active Substance: LORAZEPAM
     Indication: INSOMNIA
     Route: 048
     Dates: start: 20200401

REACTIONS (8)
  - Drug ineffective for unapproved indication [Not Recovered/Not Resolved]
  - Drug dependence [Not Recovered/Not Resolved]
  - Depression [Not Recovered/Not Resolved]
  - Dyspnoea [Not Recovered/Not Resolved]
  - Fatigue [Not Recovered/Not Resolved]
  - Asthenia [Not Recovered/Not Resolved]
  - Somnolence [Not Recovered/Not Resolved]
  - Malaise [Not Recovered/Not Resolved]

NARRATIVE: CASE EVENT DATE: 20200401
